FAERS Safety Report 9546601 (Version 3)
Quarter: 2014Q2

REPORT INFORMATION
  Report Type: Spontaneous
  Country: US (occurrence: US)
  Receive Date: 20130924
  Receipt Date: 20140508
  Transmission Date: 20141212
  Serious: Yes (Hospitalization, Other)
  Sender: FDA-Public Use
  Company Number: US-ROCHE-1268536

PATIENT
  Age: 63 Year
  Sex: Male

DRUGS (23)
  1. XOLAIR [Suspect]
     Indication: ASTHMA
     Route: 065
     Dates: start: 2006
  2. XOLAIR [Suspect]
     Route: 065
     Dates: start: 200803, end: 200805
  3. XOLAIR [Suspect]
     Route: 065
     Dates: start: 200810, end: 200812
  4. XOLAIR [Suspect]
     Route: 065
     Dates: start: 201002, end: 201004
  5. XOLAIR [Suspect]
     Route: 065
     Dates: start: 201009, end: 201011
  6. XOLAIR [Suspect]
     Route: 065
     Dates: start: 201111, end: 201202
  7. XOLAIR [Suspect]
     Route: 065
     Dates: start: 201206, end: 201208
  8. XOLAIR [Suspect]
     Route: 065
     Dates: start: 201306, end: 201308
  9. ALBUTEROL [Concomitant]
  10. DULERA [Concomitant]
     Indication: ASTHMA
     Route: 065
     Dates: start: 201102
  11. PREDNISONE [Concomitant]
     Indication: HYPERSENSITIVITY
     Route: 048
  12. LORATINE [Concomitant]
     Indication: HYPERSENSITIVITY
     Route: 065
     Dates: end: 20130829
  13. OMEPRAZOLE [Concomitant]
     Indication: GASTROOESOPHAGEAL REFLUX DISEASE
     Route: 065
     Dates: start: 200901
  14. LOSARTAN [Concomitant]
     Indication: PULMONARY HYPERTENSION
     Route: 065
  15. REGLAN [Concomitant]
     Dosage: AT BEDTIME AND SUPPER
     Route: 065
     Dates: start: 201208
  16. PRAVASTATIN [Concomitant]
     Indication: HYPERLIPIDAEMIA
     Route: 065
     Dates: start: 201304
  17. DOXEPIN [Concomitant]
     Indication: DEPRESSION
     Dosage: TAKES AT BEDTIME
     Route: 065
     Dates: start: 200901
  18. SERTRALINE [Concomitant]
     Indication: DEPRESSION
     Dosage: TAKE AT BEDTIME
     Route: 065
     Dates: start: 201208
  19. FLONASE [Concomitant]
     Indication: HYPERSENSITIVITY
     Route: 045
     Dates: start: 200708
  20. FLONASE [Concomitant]
     Indication: RHINITIS
  21. ZYRTEC [Concomitant]
  22. QVAR [Concomitant]
     Indication: ASTHMA
     Route: 065
     Dates: start: 201302
  23. ZYFLO [Concomitant]
     Indication: ASTHMA
     Route: 048
     Dates: start: 200808

REACTIONS (10)
  - Abdominal pain [Recovered/Resolved]
  - Dyspnoea [Recovered/Resolved]
  - Erythema [Not Recovered/Not Resolved]
  - Pruritus [Not Recovered/Not Resolved]
  - Nausea [Recovered/Resolved]
  - Flushing [Unknown]
  - Drug hypersensitivity [Not Recovered/Not Resolved]
  - Rash [Recovered/Resolved]
  - Wheezing [Unknown]
  - Drug hypersensitivity [Unknown]
